FAERS Safety Report 7561457-0 (Version None)
Quarter: 2011Q2

REPORT INFORMATION
  Report Type: 
  Country: None (occurrence: None)
  Receive Date: 20110621
  Receipt Date: 20100507
  Transmission Date: 20111010
  Serious: No
  Sender: FDA-Public Use
  Company Number: US-ASTRAZENECA-2010SE12800

PATIENT
  Age: 717 Day
  Sex: Female
  Weight: 14 kg

DRUGS (7)
  1. NASACORT [Concomitant]
  2. PULMICORT [Suspect]
     Indication: RHINITIS
     Dosage: 0.25 MG/ML BID
     Route: 055
     Dates: start: 20091103, end: 20100325
  3. ALBUTEROL SULFATE AUTOHALER [Concomitant]
  4. PULMICORT [Suspect]
     Indication: ASTHMA
     Dosage: 0.25 MG/ML BID
     Route: 055
     Dates: start: 20091103, end: 20100325
  5. SINGULAIR [Concomitant]
  6. CLARITIN OR ZYRTEC [Concomitant]
  7. BENADRYL [Concomitant]

REACTIONS (1)
  - ALOPECIA [None]
